FAERS Safety Report 26177173 (Version 1)
Quarter: 2025Q4

REPORT INFORMATION
  Report Type: Spontaneous
  Country: TR (occurrence: TR)
  Receive Date: 20251219
  Receipt Date: 20251219
  Transmission Date: 20260119
  Serious: Yes (Other)
  Sender: AMGEN
  Company Number: TR-AMGEN-TURSP2025245515

PATIENT

DRUGS (1)
  1. XGEVA [Suspect]
     Active Substance: DENOSUMAB
     Indication: Metastases to bone
     Dosage: 120 MILLIGRAM
     Route: 058

REACTIONS (9)
  - Glomerular filtration rate decreased [Unknown]
  - Hypocalcaemia [Unknown]
  - Osteonecrosis of jaw [Unknown]
  - Pathological fracture [Unknown]
  - Lower limb fracture [Unknown]
  - Spinal fracture [Unknown]
  - Upper limb fracture [Unknown]
  - Fracture [Unknown]
  - Hypercalcaemia of malignancy [Unknown]
